FAERS Safety Report 24216940 (Version 1)
Quarter: 2024Q3

REPORT INFORMATION
  Report Type: Spontaneous
  Country: US (occurrence: US)
  Receive Date: 20240816
  Receipt Date: 20240816
  Transmission Date: 20241017
  Serious: No
  Sender: SANOFI AVENTIS
  Company Number: US-SA-2023MK000088

PATIENT
  Age: 63 Year
  Sex: Male

DRUGS (2)
  1. AFREZZA [Suspect]
     Active Substance: INSULIN HUMAN
     Indication: Type 2 diabetes mellitus
     Dosage: 8 UNITS TID WITH EACH MEAL IN PAST 8-10 DAYS, PATIENT HAS BEEN NEEDING A?4TH DOSE OF 8 UNITS AFTER L
     Dates: start: 2020
  2. TOUJEO [Concomitant]
     Active Substance: INSULIN GLARGINE
     Indication: Type 2 diabetes mellitus
     Dosage: {30 MINS QAM
     Route: 065

REACTIONS (5)
  - Malaise [Unknown]
  - Speech disorder [Unknown]
  - Blood glucose increased [Unknown]
  - Drug ineffective [Unknown]
  - Product lot number issue [Unknown]
